FAERS Safety Report 7939730-3 (Version None)
Quarter: 2011Q4

REPORT INFORMATION
  Report Type: 
  Country: None (occurrence: None)
  Receive Date: 20111125
  Receipt Date: 20111118
  Transmission Date: 20120403
  Serious: Yes (Hospitalization)
  Sender: FDA-Public Use
  Company Number: PHHY2011IN100079

PATIENT
  Age: 50 Year
  Sex: Female

DRUGS (3)
  1. ZOLEDRONOC ACID [Suspect]
     Dosage: 5 MG/100 ML
     Route: 042
  2. ACE PROXYVON [Concomitant]
     Dates: start: 20111027
  3. ASCORBIC ACID [Concomitant]
     Dates: start: 20111027

REACTIONS (2)
  - OSTEOPOROTIC FRACTURE [None]
  - RADIUS FRACTURE [None]
